FAERS Safety Report 9215524 (Version 2)
Quarter: 2013Q2

REPORT INFORMATION
  Report Type: Spontaneous
  Country: FR (occurrence: FR)
  Receive Date: 20130406
  Receipt Date: 20130523
  Transmission Date: 20140414
  Serious: Yes (Hospitalization, Disabling, Other)
  Sender: FDA-Public Use
  Company Number: FR-B.I. PHARMACEUTICALS,INC./RIDGEFIELD-2013-FF-01070FF

PATIENT
  Age: 80 Year
  Sex: Female
  Weight: 90.1 kg

DRUGS (6)
  1. PRADAXA [Suspect]
     Indication: ATRIAL FIBRILLATION
     Dosage: 220 MG
     Route: 048
     Dates: start: 20130227, end: 20130303
  2. NEBILOX [Concomitant]
     Dosage: 5 MG
     Route: 048
  3. LIPANTHYL [Concomitant]
     Dosage: 145 MG
     Route: 048
  4. LERCAPRESS [Concomitant]
     Dosage: 10 MG
     Route: 048
  5. CYCLO 3 [Concomitant]
     Route: 048
  6. PSYLIA [Concomitant]
     Route: 048

REACTIONS (4)
  - Ischaemic stroke [Recovered/Resolved with Sequelae]
  - Drug ineffective [Unknown]
  - Aphasia [Recovered/Resolved]
  - Haematoma [Unknown]
